FAERS Safety Report 11571515 (Version 1)
Quarter: 2015Q3

REPORT INFORMATION
  Report Type: Spontaneous
  Country: US (occurrence: US)
  Receive Date: 20150916
  Receipt Date: 20150916
  Transmission Date: 20151125
  Serious: No
  Sender: FDA-Public Use
  Company Number: US-ELI_LILLY_AND_COMPANY-US200909006254

PATIENT
  Age: 58 Year
  Sex: Female

DRUGS (18)
  1. FORTEO [Suspect]
     Active Substance: TERIPARATIDE
     Dosage: UNK, UNK
     Dates: start: 20090901
  2. IRON [Concomitant]
     Active Substance: IRON
  3. VITAMINS NOS [Concomitant]
     Active Substance: VITAMINS
  4. LASIX [Concomitant]
     Active Substance: FUROSEMIDE
  5. VITAMIN D [Concomitant]
     Active Substance: CHOLECALCIFEROL
  6. DUOVENT [Concomitant]
     Active Substance: FENOTEROL HYDROBROMIDE
  7. COREG [Concomitant]
     Active Substance: CARVEDILOL
  8. SIMVASTATIN. [Concomitant]
     Active Substance: SIMVASTATIN
  9. ALBUTEROL. [Concomitant]
     Active Substance: ALBUTEROL
  10. PRILOSEC [Concomitant]
     Active Substance: OMEPRAZOLE MAGNESIUM
  11. VITAMIN C [Concomitant]
     Active Substance: ASCORBIC ACID
  12. GLUCOSAMINE [Concomitant]
     Active Substance: GLUCOSAMINE
  13. LORTAB [Concomitant]
     Active Substance: ACETAMINOPHEN\HYDROCODONE BITARTRATE
     Dosage: UNK, AS NEEDED
  14. FISH OIL [Concomitant]
     Active Substance: FISH OIL
  15. CALCIUM [Concomitant]
     Active Substance: CALCIUM
  16. LISINOPRIL. [Concomitant]
     Active Substance: LISINOPRIL
  17. NASONEX [Concomitant]
     Active Substance: MOMETASONE FUROATE
  18. COMBIVENT [Concomitant]
     Active Substance: ALBUTEROL SULFATE\IPRATROPIUM BROMIDE

REACTIONS (2)
  - Night sweats [Unknown]
  - Headache [Recovered/Resolved]

NARRATIVE: CASE EVENT DATE: 20090901
